FAERS Safety Report 14124484 (Version 1)
Quarter: 2017Q4

REPORT INFORMATION
  Report Type: Spontaneous
  Country: US (occurrence: US)
  Receive Date: 20171025
  Receipt Date: 20171025
  Transmission Date: 20180321
  Serious: No
  Sender: FDA-Public Use
  Company Number: US-PFIZER INC-2017458884

PATIENT
  Age: 72 Year
  Sex: Male

DRUGS (2)
  1. GABAPENTIN. [Suspect]
     Active Substance: GABAPENTIN
     Indication: NEUROPATHY PERIPHERAL
     Dosage: 3000 MG, DAILY
  2. METANX [Suspect]
     Active Substance: LEVOMEFOLATE CALCIUM\METHYLCOBALAMIN\PYRIDOXAL PHOSPHATE ANHYDROUS
     Dosage: 3-90.314-2-35 MG CAPSULE AS DIRECTED ORALLY TWICE A DAY
     Route: 048

REACTIONS (1)
  - Drug ineffective for unapproved indication [Unknown]
